FAERS Safety Report 15347156 (Version 1)
Quarter: 2018Q3

REPORT INFORMATION
  Report Type: Spontaneous
  Country: US (occurrence: US)
  Receive Date: 20180828
  Receipt Date: 20180828
  Transmission Date: 20181010
  Serious: Yes (Hospitalization)
  Sender: FDA-Public Use
  Company Number: None

PATIENT
  Age: 77 Year
  Sex: Male

DRUGS (1)
  1. VOTRIENT [Suspect]
     Active Substance: PAZOPANIB HYDROCHLORIDE
     Route: 048

REACTIONS (4)
  - Nausea [None]
  - Vomiting [None]
  - Diarrhoea [None]
  - Neutropenia [None]

NARRATIVE: CASE EVENT DATE: 20180801
